FAERS Safety Report 8004773-0 (Version None)
Quarter: 2011Q4

REPORT INFORMATION
  Report Type: 
  Country: None (occurrence: None)
  Receive Date: 20111223
  Receipt Date: 20111214
  Transmission Date: 20120403
  Serious: Yes (Hospitalization)
  Sender: FDA-Public Use
  Company Number: US-BRISTOL-MYERS SQUIBB COMPANY-16294159

PATIENT
  Age: 62 Year
  Sex: Female
  Weight: 57 kg

DRUGS (17)
  1. PLAVIX [Suspect]
     Route: 048
  2. BENTYL [Concomitant]
  3. VISTARIL [Concomitant]
  4. METFORMIN HCL [Suspect]
  5. VENTOLIN [Concomitant]
     Route: 045
  6. ASCORBIC ACID [Concomitant]
  7. SPIRIVA [Concomitant]
     Route: 045
  8. ASPIRIN [Concomitant]
  9. CARVEDILOL [Concomitant]
  10. TRAMADOL HCL [Concomitant]
  11. THEOPHYLLINE [Concomitant]
  12. ZANTAC [Suspect]
  13. LOTENSIN [Concomitant]
  14. ZOCOR [Concomitant]
  15. NITROSTAT [Concomitant]
  16. CALCIUM + VITAMIN D [Concomitant]
  17. ZYRTEC [Concomitant]

REACTIONS (6)
  - DYSPEPSIA [None]
  - NAUSEA [None]
  - CONSTIPATION [None]
  - BLOOD IRON DECREASED [None]
  - SURGERY [None]
  - DIARRHOEA [None]
